FAERS Safety Report 9341354 (Version 1)
Quarter: 2013Q2

REPORT INFORMATION
  Report Type: Spontaneous
  Country: US (occurrence: None)
  Receive Date: 20130610
  Receipt Date: 20130610
  Transmission Date: 20140414
  Serious: Yes (Hospitalization)
  Sender: FDA-Public Use
  Company Number: None

PATIENT
  Age: 63 Year
  Sex: Female
  Weight: 68.04 kg

DRUGS (8)
  1. TEMODAR [Suspect]
     Indication: GLIOBLASTOMA
     Dosage: 260MG PO DAILY  X 5 DAYS EVERY 28  BY MOUTH
     Route: 048
  2. TEMODAR [Suspect]
  3. LAMICTAL [Concomitant]
  4. LEXAPRO [Concomitant]
  5. AMLODIPINE [Concomitant]
  6. LITHIUM [Concomitant]
  7. DECADRON [Concomitant]
  8. LOVENOX [Concomitant]

REACTIONS (1)
  - Pulmonary thrombosis [None]
